FAERS Safety Report 10264905 (Version 1)
Quarter: 2014Q2

REPORT INFORMATION
  Report Type: Spontaneous
  Country: US (occurrence: US)
  Receive Date: 20140627
  Receipt Date: 20140627
  Transmission Date: 20141212
  Serious: Yes (Hospitalization)
  Sender: FDA-Public Use
  Company Number: US-BAYER-2014-095281

PATIENT
  Age: 39 Year
  Sex: Female

DRUGS (6)
  1. YASMIN [Suspect]
  2. FERROUS SULFATE [Concomitant]
     Dosage: 325 MG, TID
     Route: 048
     Dates: start: 20081025, end: 20081115
  3. AMOXICILLIN [Concomitant]
     Dosage: 500 MG, TID
     Dates: start: 20081106
  4. TUMS [CALCIUM CARBONATE,MAGNESIUM CARBONATE,MAGNESIUM TRISILICATE] [Concomitant]
     Dosage: UNK
     Dates: start: 20081115
  5. IBUPROFEN [Concomitant]
     Indication: DYSMENORRHOEA
     Dosage: UNK UNK, PRN
  6. ORTHO EVRA [Concomitant]
     Dosage: UNK
     Dates: start: 20081025

REACTIONS (1)
  - Pulmonary embolism [None]
